FAERS Safety Report 13254965 (Version 3)
Quarter: 2017Q1

REPORT INFORMATION
  Report Type: Spontaneous
  Country: US (occurrence: US)
  Receive Date: 20170221
  Receipt Date: 20170314
  Transmission Date: 20170428
  Serious: No
  Sender: FDA-Public Use
  Company Number: US-PFIZER INC-2017069105

PATIENT
  Age: 73 Year
  Sex: Female
  Weight: 62.36 kg

DRUGS (2)
  1. LYRICA [Suspect]
     Active Substance: PREGABALIN
     Indication: HERPES ZOSTER
     Dosage: 131.25 MG, (TOOK ONE 75 MG AT 9:00 AM THEN ABOUT A QUARTER AT NIGHT THEN HALF AT 10:35 PM)
     Dates: start: 20170207, end: 20170207
  2. LYRICA [Suspect]
     Active Substance: PREGABALIN
     Dosage: 75 MG, 2X/DAY
     Route: 048
     Dates: start: 20170208, end: 20170208

REACTIONS (4)
  - Feeling abnormal [Recovered/Resolved]
  - Intentional product misuse [Recovered/Resolved]
  - Dizziness [Recovered/Resolved]
  - Reaction to drug excipients [Unknown]

NARRATIVE: CASE EVENT DATE: 201702
